FAERS Safety Report 7351234-8 (Version None)
Quarter: 2011Q1

REPORT INFORMATION
  Report Type: 
  Country: None (occurrence: None)
  Receive Date: 20110314
  Receipt Date: 20110301
  Transmission Date: 20110831
  Serious: Yes (Other)
  Sender: FDA-Public Use
  Company Number: JP-GENENTECH-314961

PATIENT
  Sex: Female

DRUGS (8)
  1. RANIBIZUMAB [Suspect]
     Dosage: 0.05 ML, UNKNOWN
     Route: 031
     Dates: start: 20101213
  2. HYALEIN [Concomitant]
     Indication: PRODUCT USED FOR UNKNOWN INDICATION
  3. RANIBIZUMAB [Suspect]
     Indication: MACULAR DEGENERATION
     Dosage: 0.05 ML, UNKNOWN
     Route: 031
     Dates: start: 20100907
  4. PATANOL [Concomitant]
     Indication: PRODUCT USED FOR UNKNOWN INDICATION
  5. RANIBIZUMAB [Suspect]
     Dosage: 0.05 ML, UNKNOWN
     Route: 031
     Dates: start: 20101101
  6. CRAVIT [Concomitant]
     Indication: PRODUCT USED FOR UNKNOWN INDICATION
     Dosage: UNK
     Dates: start: 20100901, end: 20101201
  7. MOXIFLOXACIN HYDROCHLORIDE [Concomitant]
     Indication: PRODUCT USED FOR UNKNOWN INDICATION
     Dosage: UNK
     Dates: start: 20100901
  8. KARY UNI [Concomitant]
     Indication: PRODUCT USED FOR UNKNOWN INDICATION

REACTIONS (4)
  - CORNEAL EROSION [None]
  - HERPES SIMPLEX SEROLOGY POSITIVE [None]
  - VISUAL ACUITY REDUCED [None]
  - CORNEAL OPACITY [None]
